FAERS Safety Report 9247533 (Version 3)
Quarter: 2013Q2

REPORT INFORMATION
  Report Type: Spontaneous
  Country: JP (occurrence: JP)
  Receive Date: 20130423
  Receipt Date: 20130610
  Transmission Date: 20140414
  Serious: Yes (Hospitalization, Other)
  Sender: FDA-Public Use
  Company Number: JP-UCBSA-083846

PATIENT
  Age: 53 Year
  Sex: Female

DRUGS (8)
  1. XYZAL [Suspect]
     Indication: SEASONAL ALLERGY
     Route: 048
     Dates: start: 20130318, end: 20130409
  2. PAXIL [Suspect]
     Indication: PANIC DISORDER
     Route: 048
     Dates: start: 201302, end: 20130409
  3. PAXIL [Suspect]
     Indication: PANIC DISORDER
     Route: 048
     Dates: start: 201301, end: 201302
  4. PAXIL [Suspect]
     Indication: PANIC DISORDER
     Route: 048
     Dates: end: 201301
  5. PAXIL [Suspect]
     Indication: PANIC DISORDER
     Route: 048
     Dates: start: 2010
  6. MICARDIS [Concomitant]
     Indication: HYPERTENSION
     Route: 048
     Dates: start: 20130316, end: 20130409
  7. MUCOSTA [Concomitant]
     Indication: RIB FRACTURE
     Route: 048
     Dates: start: 20130318, end: 20130409
  8. PEON [Concomitant]
     Indication: RIB FRACTURE
     Route: 048
     Dates: start: 20130318, end: 20130409

REACTIONS (11)
  - Ventricular tachycardia [Recovered/Resolved]
  - Syncope [Recovering/Resolving]
  - Ventricular fibrillation [Recovered/Resolved]
  - Electrocardiogram QT prolonged [Recovering/Resolving]
  - Rib fracture [Unknown]
  - Hypertension [Unknown]
  - Decreased appetite [Unknown]
  - Alcohol abuse [Unknown]
  - Hypophagia [Unknown]
  - Hepatic function abnormal [Unknown]
  - Palpitations [Unknown]
